FAERS Safety Report 7669508-X (Version None)
Quarter: 2011Q3

REPORT INFORMATION
  Report Type: 
  Country: None (occurrence: None)
  Receive Date: 20110808
  Receipt Date: 20110729
  Transmission Date: 20111222
  Serious: Yes (Hospitalization)
  Sender: FDA-Public Use
  Company Number: JP-MERCK-1107USA00334

PATIENT
  Age: 64 Year
  Sex: Male

DRUGS (9)
  1. CELECOXIB [Suspect]
     Indication: OSTEOARTHRITIS
     Route: 048
     Dates: start: 20110507, end: 20110514
  2. LOXONIN [Suspect]
     Indication: OSTEOARTHRITIS
     Route: 048
     Dates: end: 20110601
  3. PRAVASTATIN SODIUM [Concomitant]
     Route: 065
  4. CLARITHROMYCIN [Concomitant]
     Route: 048
     Dates: start: 20110204, end: 20110210
  5. AMOXICILLIN [Suspect]
     Indication: HELICOBACTER INFECTION
     Route: 048
     Dates: start: 20110204, end: 20110210
  6. RABEPRAZOLE SODIUM [Concomitant]
     Route: 048
     Dates: start: 20110204, end: 20110210
  7. TROXSIN [Concomitant]
     Route: 048
     Dates: end: 20110514
  8. PEPCID [Suspect]
     Route: 048
     Dates: start: 20080101
  9. CELECOXIB [Suspect]
     Route: 048
     Dates: start: 20110601, end: 20110617

REACTIONS (1)
  - LIVER DISORDER [None]
